FAERS Safety Report 23073167 (Version 1)
Quarter: 2023Q4

REPORT INFORMATION
  Report Type: Spontaneous
  Country: US (occurrence: US)
  Receive Date: 20231017
  Receipt Date: 20231017
  Transmission Date: 20240110
  Serious: No
  Sender: FDA-Public Use
  Company Number: US-APOTEX-2023AP008979

PATIENT
  Sex: Female

DRUGS (5)
  1. OFLOXACIN [Suspect]
     Active Substance: OFLOXACIN
     Indication: Dark circles under eyes
     Dosage: 3 GTT DROPS IN 1 EYE, QD
     Route: 047
     Dates: start: 20230416
  2. OFLOXACIN [Suspect]
     Active Substance: OFLOXACIN
     Indication: Cataract
     Dosage: 2 GTT DROPS IN 1 EYE, QD
     Route: 047
     Dates: start: 202304
  3. KETOROLAC TROMETHAMINE [Suspect]
     Active Substance: KETOROLAC TROMETHAMINE
     Indication: Dark circles under eyes
     Dosage: UNK
     Route: 047
  4. KETOROLAC TROMETHAMINE [Suspect]
     Active Substance: KETOROLAC TROMETHAMINE
     Indication: Cataract
  5. PREDNISOLONE [Suspect]
     Active Substance: PREDNISOLONE
     Indication: Product used for unknown indication
     Dosage: UNK
     Route: 065

REACTIONS (6)
  - Faeces discoloured [Unknown]
  - Tooth discolouration [Unknown]
  - Skin discolouration [Unknown]
  - Product after taste [Unknown]
  - Product lot number issue [Unknown]
  - Dark circles under eyes [Not Recovered/Not Resolved]

NARRATIVE: CASE EVENT DATE: 20230401
